FAERS Safety Report 4745261-4 (Version None)
Quarter: 2005Q3

REPORT INFORMATION
  Report Type: 
  Country: None (occurrence: None)
  Receive Date: 20050812
  Receipt Date: 20050802
  Transmission Date: 20060218
  Serious: Yes (Other)
  Sender: FDA-Public Use
  Company Number: 2005111226

PATIENT
  Age: 84 Year
  Sex: Male

DRUGS (7)
  1. ARTHROTEC [Suspect]
     Indication: ARTHRITIS
     Dosage: 100 MG (50 MG, 2 IN 1 D), ORAL
     Route: 048
     Dates: end: 20050714
  2. LISINOPRIL [Suspect]
     Indication: BLOOD PRESSURE INCREASED
     Dosage: 15 MG (15 MG, 1 IN 1 D),ORAL
     Route: 048
     Dates: end: 20050714
  3. IMODIUM A-D [Suspect]
     Indication: ILL-DEFINED DISORDER
     Dosage: 8 MG (2 MG, 4 IN 1 D),ORAL
     Route: 048
     Dates: end: 20050715
  4. FUROSEMIDE [Concomitant]
  5. SENNA (SENNA) [Concomitant]
  6. PHENYTOIN [Concomitant]
  7. PHENOBARBITONE (PHENIBARBITAL) [Concomitant]

REACTIONS (2)
  - BLOOD POTASSIUM INCREASED [None]
  - CONSTIPATION [None]
